FAERS Safety Report 25218666 (Version 2)
Quarter: 2025Q2

REPORT INFORMATION
  Report Type: Spontaneous
  Country: IN (occurrence: IN)
  Receive Date: 20250421
  Receipt Date: 20250514
  Transmission Date: 20250717
  Serious: Yes (Hospitalization, Other)
  Sender: RANBAXY
  Company Number: IN-SUN PHARMACEUTICAL INDUSTRIES LTD-2025R1-504548

PATIENT
  Age: 32 Year
  Sex: Female

DRUGS (1)
  1. LIDOCAINE [Suspect]
     Active Substance: LIDOCAINE
     Indication: Anaesthesia procedure
     Route: 008

REACTIONS (4)
  - Exposure during pregnancy [Unknown]
  - Dyspnoea [Unknown]
  - Neuromuscular blockade [Unknown]
  - Premature delivery [Unknown]
